FAERS Safety Report 23726198 (Version 1)
Quarter: 2024Q2

REPORT INFORMATION
  Report Type: Spontaneous
  Country: CN (occurrence: CN)
  Receive Date: 20240410
  Receipt Date: 20240410
  Transmission Date: 20240716
  Serious: Yes (Other)
  Sender: FDA-Public Use
  Company Number: CN-SPECGX-T202400836

PATIENT
  Age: 87 Year
  Sex: Male

DRUGS (1)
  1. TYLOX [Suspect]
     Active Substance: ACETAMINOPHEN\OXYCODONE HYDROCHLORIDE
     Indication: Analgesic therapy
     Dosage: 1 DOSAGE FORM, QD
     Route: 048
     Dates: start: 20240201, end: 20240210

REACTIONS (6)
  - Gaze palsy [Unknown]
  - Trismus [Unknown]
  - Increased upper airway secretion [Unknown]
  - Unresponsive to stimuli [Unknown]
  - Tachypnoea [Unknown]
  - Epilepsy [Recovered/Resolved]

NARRATIVE: CASE EVENT DATE: 20240210
